FAERS Safety Report 19005388 (Version 1)
Quarter: 2021Q1

REPORT INFORMATION
  Report Type: Spontaneous
  Country: US (occurrence: US)
  Receive Date: 20210312
  Receipt Date: 20210312
  Transmission Date: 20210420
  Serious: No
  Sender: FDA-Public Use
  Company Number: US-JNJFOC-20210302043

PATIENT
  Sex: Male

DRUGS (1)
  1. MOTRIN IB [Suspect]
     Active Substance: IBUPROFEN
     Indication: PAIN
     Dosage: USING THE PRODUCT LIKE EVERY HOUR AND USING 6?8 PILLS EACH TIME
     Route: 048
     Dates: start: 202102

REACTIONS (1)
  - Overdose [Unknown]

NARRATIVE: CASE EVENT DATE: 202102
